FAERS Safety Report 22080093 (Version 1)
Quarter: 2023Q1

REPORT INFORMATION
  Report Type: Spontaneous
  Country: US (occurrence: None)
  Receive Date: 20230309
  Receipt Date: 20230309
  Transmission Date: 20230417
  Serious: Yes (Hospitalization)
  Sender: FDA-Public Use
  Company Number: None

PATIENT
  Sex: Male

DRUGS (1)
  1. AVONEX [Suspect]
     Active Substance: INTERFERON BETA-1A
     Indication: Multiple sclerosis
     Dosage: OTHER FREQUENCY : EVERY 7 DAYS ;?
     Route: 030
     Dates: start: 20130218

REACTIONS (3)
  - Multiple sclerosis relapse [None]
  - Seizure [None]
  - Cerebrovascular accident [None]
